FAERS Safety Report 24143302 (Version 2)
Quarter: 2024Q3

REPORT INFORMATION
  Report Type: Spontaneous
  Country: DE (occurrence: DE)
  Receive Date: 20240726
  Receipt Date: 20240731
  Transmission Date: 20241017
  Serious: Yes (Hospitalization, Other)
  Sender: GILEAD
  Company Number: DE-PEI-202300047418

PATIENT
  Age: 61 Year
  Sex: Female

DRUGS (1)
  1. YESCARTA [Suspect]
     Active Substance: AXICABTAGENE CILOLEUCEL
     Indication: Lymphocyte adoptive therapy
     Dosage: 1 DOSAGE FORM
     Route: 065
     Dates: start: 20221222

REACTIONS (5)
  - Pancytopenia [Not Recovered/Not Resolved]
  - Pneumonia pneumococcal [Not Recovered/Not Resolved]
  - Structural brain disorder [Not Recovered/Not Resolved]
  - Cerebral ventricle dilatation [Not Recovered/Not Resolved]
  - Meningitis pneumococcal [Not Recovered/Not Resolved]

NARRATIVE: CASE EVENT DATE: 20231112
